FAERS Safety Report 4575566-1 (Version None)
Quarter: 2005Q1

REPORT INFORMATION
  Report Type: 
  Country: None (occurrence: None)
  Receive Date: 20050209
  Receipt Date: 20050128
  Transmission Date: 20050727
  Serious: Yes (Other)
  Sender: FDA-Public Use
  Company Number: US-JNJFOC-20040900088

PATIENT
  Sex: Female

DRUGS (2)
  1. TOPAMAX [Suspect]
     Indication: MIGRAINE PROPHYLAXIS
     Dosage: CONSUMER ON TOPIRAMATE FOR APPROXIMATELY 3 MONTHS.
     Route: 049
     Dates: end: 20030101
  2. PREMARIN [Concomitant]
     Indication: MENOPAUSE

REACTIONS (7)
  - DIPLOPIA [None]
  - EYE PAIN [None]
  - MACULAR DEGENERATION [None]
  - MUSCLE ATROPHY [None]
  - VERTIGO [None]
  - VISION BLURRED [None]
  - VISUAL FIELD DEFECT [None]
